FAERS Safety Report 8902381 (Version 1)
Quarter: 2012Q4

REPORT INFORMATION
  Report Type: 
  Country: US (occurrence: US)
  Receive Date: 20121112
  Receipt Date: 20121112
  Transmission Date: 20130627
  Serious: No
  Sender: FDA-Public Use
  Company Number: US-PFIZER INC-2012277621

PATIENT
  Age: 48 Year
  Sex: Female
  Weight: 87.98 kg

DRUGS (8)
  1. CLINDAMYCIN HCL [Suspect]
  2. FLAGYL [Suspect]
  3. LINCOCIN [Suspect]
  4. SEPTRA [Suspect]
  5. AUGMENTIN [Suspect]
  6. BIAXIN [Suspect]
  7. CIPRO [Suspect]
  8. ERYTHROMYCIN [Suspect]

REACTIONS (1)
  - Drug hypersensitivity [Unknown]
